FAERS Safety Report 4974726-5 (Version None)
Quarter: 2006Q2

REPORT INFORMATION
  Report Type: 
  Country: None (occurrence: None)
  Receive Date: 20060417
  Receipt Date: 20060109
  Transmission Date: 20061013
  Serious: Yes (Other)
  Sender: FDA-Public Use
  Company Number: US-MERCK-0601USA00961

PATIENT
  Sex: Female

DRUGS (1)
  1. VIOXX [Suspect]
     Route: 048
     Dates: start: 20000101, end: 20030101

REACTIONS (6)
  - ANXIETY [None]
  - BRAIN DAMAGE [None]
  - CARDIOVASCULAR DISORDER [None]
  - HAEMORRHAGIC STROKE [None]
  - NERVOUS SYSTEM DISORDER [None]
  - POLYTRAUMATISM [None]
